FAERS Safety Report 18887248 (Version 1)
Quarter: 2021Q1

REPORT INFORMATION
  Report Type: Spontaneous
  Country: DE (occurrence: DE)
  Receive Date: 20210212
  Receipt Date: 20210212
  Transmission Date: 20210420
  Serious: Yes (Other)
  Sender: FDA-Public Use
  Company Number: DE-GLAXOSMITHKLINE-DE2021030096

PATIENT
  Age: 1 Day
  Sex: Female
  Weight: 3.51 kg

DRUGS (9)
  1. CIMZIA [Concomitant]
     Active Substance: CERTOLIZUMAB PEGOL
     Indication: RHEUMATOID ARTHRITIS
     Dosage: 200 MG (200 [MG/2WK ])
     Route: 064
     Dates: start: 20181209, end: 20190826
  2. AGYRAX [Concomitant]
     Active Substance: MECLIZINE HYDROCHLORIDE
     Indication: MORNING SICKNESS
     Dosage: 100 [MG/D ]
     Route: 064
  3. LAMOTRIGINE. [Suspect]
     Active Substance: LAMOTRIGINE
     Indication: EPILEPSY
     Dosage: UNK(2000 [MG/D (BIS 450))
     Route: 064
     Dates: start: 20181209, end: 20190826
  4. FRISIUM [Suspect]
     Active Substance: CLOBAZAM
     Indication: EPILEPSY
     Dosage: UNK (20 [MG/D (BIS 5) ]/ FIRST 5 MG/, THEN 10 MG/D. FROM GW 35: 20 MG/D)
     Route: 064
     Dates: start: 20190801, end: 20190826
  5. PREDNISOLON [Concomitant]
     Active Substance: PREDNISOLONE
     Indication: RHEUMATOID ARTHRITIS
     Dosage: 10 [MG/D (BIS 5 MG/D) ]
     Route: 064
     Dates: start: 20181209, end: 20190826
  6. PANTOPRAZOL [Concomitant]
     Active Substance: PANTOPRAZOLE SODIUM
     Indication: GASTRITIS PROPHYLAXIS
     Dosage: 40 [MG/D (IF NECESSARY) ]
     Route: 064
  7. L?THYROXIN [Concomitant]
     Active Substance: LEVOTHYROXINE SODIUM
     Indication: HYPOTHYROIDISM
     Dosage: 50 UG
     Route: 064
     Dates: start: 20181209, end: 20190826
  8. IBUPROFEN. [Concomitant]
     Active Substance: IBUPROFEN
     Indication: RHEUMATOID ARTHRITIS
     Dosage: 10 DF (IN TOTAL, 10 TABLES DURING PREGNANCY)
     Route: 064
  9. PARACETAMOL [Concomitant]
     Active Substance: ACETAMINOPHEN
     Indication: RHEUMATOID ARTHRITIS
     Dosage: 500 MG, QD (500 [MG/D (IF NECESSARY) ]/ IN TOTAL, NO MORE HAN 25 TABLETS DURING THE WHOLE PREGNANCY)
     Route: 064

REACTIONS (3)
  - Foetal exposure during pregnancy [Unknown]
  - Floppy infant [Recovered/Resolved]
  - Myoclonus [Unknown]

NARRATIVE: CASE EVENT DATE: 20190826
